FAERS Safety Report 7841991-6 (Version None)
Quarter: 2011Q4

REPORT INFORMATION
  Report Type: 
  Country: None (occurrence: None)
  Receive Date: 20111019
  Receipt Date: 20111004
  Transmission Date: 20120403
  Serious: Yes (Other)
  Sender: FDA-Public Use
  Company Number: 2011SP047174

PATIENT
  Age: 51 Year
  Sex: Male

DRUGS (5)
  1. NITROGLYCERIN [Suspect]
     Indication: MUSCLE STRAIN
  2. DOLANTINE /00016302/ [Concomitant]
  3. DICLOFENAC POTASSIUM [Concomitant]
  4. MIDAZOLAM HCL [Concomitant]
  5. ZOLPIDEM [Concomitant]

REACTIONS (1)
  - POSTERIOR REVERSIBLE ENCEPHALOPATHY SYNDROME [None]
